FAERS Safety Report 10552414 (Version 1)
Quarter: 2014Q4

REPORT INFORMATION
  Report Type: Spontaneous
  Country: US (occurrence: None)
  Receive Date: 20141023
  Receipt Date: 20141023
  Transmission Date: 20150529
  Serious: No
  Sender: FDA-Public Use
  Company Number: AP356-01157-SPO-US

PATIENT
  Age: 54 Year
  Sex: Female
  Weight: 75.9 kg

DRUGS (3)
  1. HORMONES [Concomitant]
     Active Substance: UNSPECIFIED INGREDIENT
  2. MULTIVITAMINS [Concomitant]
     Active Substance: VITAMINS
  3. BELVIQ [Suspect]
     Active Substance: LORCASERIN HYDROCHLORIDE
     Indication: WEIGHT DECREASED
     Dosage: 1 IN 1 D
     Route: 048
     Dates: start: 20140720, end: 201408

REACTIONS (8)
  - Wrong technique in drug usage process [None]
  - Dizziness [None]
  - Constipation [None]
  - Intentional underdose [None]
  - Migraine [None]
  - Weight increased [None]
  - Fatigue [None]
  - Chest discomfort [None]

NARRATIVE: CASE EVENT DATE: 201407
